FAERS Safety Report 24773055 (Version 2)
Quarter: 2024Q4

REPORT INFORMATION
  Report Type: Spontaneous
  Country: US (occurrence: US)
  Receive Date: 20241225
  Receipt Date: 20241225
  Transmission Date: 20250115
  Serious: Yes (Other)
  Sender: AMGEN
  Company Number: US-AMGEN-USASP2024251139

PATIENT

DRUGS (3)
  1. CARFILZOMIB [Suspect]
     Active Substance: CARFILZOMIB
     Indication: Plasma cell myeloma
     Dosage: UNK, 20/27MG/M2 ON DAYS 1, 2, 8, 9, 15 AND 16
     Route: 040
  2. FILGRASTIM [Suspect]
     Active Substance: FILGRASTIM
     Indication: Prophylaxis
     Dosage: UNK
     Route: 065
  3. FILANESIB [Suspect]
     Active Substance: FILANESIB
     Indication: Plasma cell myeloma
     Dosage: 1.25 MILLIGRAM/SQ. METER, ON DAYS 1, 2, 15 AND 16
     Route: 040

REACTIONS (6)
  - Leukopenia [Unknown]
  - Neutropenia [Unknown]
  - Thrombocytopenia [Unknown]
  - Dyspnoea [Unknown]
  - Plasma cell myeloma [Unknown]
  - Anaemia [Unknown]
